FAERS Safety Report 23147972 (Version 3)
Quarter: 2024Q1

REPORT INFORMATION
  Report Type: Report from Study
  Country: CH (occurrence: CH)
  Receive Date: 20231106
  Receipt Date: 20240311
  Transmission Date: 20240409
  Serious: Yes (Life-Threatening)
  Sender: FDA-Public Use
  Company Number: CH-002147023-NVSC2022CH191464

PATIENT
  Sex: Female

DRUGS (4)
  1. KESIMPTA [Suspect]
     Active Substance: OFATUMUMAB
     Indication: Multiple sclerosis
     Dosage: 20 MG, QMO (TITRATION) (FIRST INJECTION)
     Route: 058
     Dates: start: 20220824
  2. KESIMPTA [Suspect]
     Active Substance: OFATUMUMAB
     Dosage: 20 MG (2ND INJECTION)
     Route: 058
     Dates: start: 20220831
  3. KESIMPTA [Suspect]
     Active Substance: OFATUMUMAB
     Dosage: 20 MG, QMO (3RD INJECTION WITH RE-TITRATION OF THE DOSE)
     Route: 058
     Dates: start: 20220921, end: 202211
  4. KESIMPTA [Suspect]
     Active Substance: OFATUMUMAB
     Dosage: 20 MG, QMO (RE-TITRATION)
     Route: 058
     Dates: start: 202302, end: 20231004

REACTIONS (23)
  - White blood cell count decreased [Not Recovered/Not Resolved]
  - Pain in extremity [Recovered/Resolved]
  - Lymphocyte count decreased [Recovered/Resolved]
  - Nasopharyngitis [Recovered/Resolved]
  - Headache [Recovered/Resolved]
  - Chills [Recovered/Resolved]
  - Pyrexia [Recovered/Resolved]
  - Pyrexia [Recovered/Resolved]
  - Chills [Recovered/Resolved]
  - Injection site erythema [Recovered/Resolved]
  - Injection site swelling [Unknown]
  - Lymphocyte count decreased [Recovered/Resolved]
  - Lymphocyte count decreased [Not Recovered/Not Resolved]
  - Cystitis [Recovered/Resolved]
  - Bladder pain [Recovered/Resolved]
  - Dysuria [Recovered/Resolved]
  - Pollakiuria [Recovered/Resolved]
  - Cystitis [Not Recovered/Not Resolved]
  - Headache [Recovered/Resolved]
  - Pyrexia [Recovered/Resolved]
  - Chills [Recovered/Resolved]
  - Erythema [Not Recovered/Not Resolved]
  - Swelling [Not Recovered/Not Resolved]

NARRATIVE: CASE EVENT DATE: 20220824
